FAERS Safety Report 8784775 (Version 1)
Quarter: 2012Q4

REPORT INFORMATION
  Report Type: 
  Country: US (occurrence: US)
  Receive Date: 20120914
  Receipt Date: 20120914
  Transmission Date: 20130627
  Serious: No
  Sender: FDA-Public Use
  Company Number: US-ASTRAZENECA-2012SE65876

PATIENT
  Age: 37 Year
  Sex: Female
  Weight: 56.7 kg

DRUGS (8)
  1. NEXIUM [Suspect]
     Indication: GASTROOESOPHAGEAL REFLUX DISEASE
     Route: 048
     Dates: start: 201206
  2. NEXIUM [Suspect]
     Indication: GASTROOESOPHAGEAL REFLUX DISEASE
     Route: 048
  3. PROPANOLOL [Concomitant]
     Indication: PALPITATIONS
     Route: 048
     Dates: start: 20120821
  4. PROPANOLOL [Concomitant]
     Indication: TACHYCARDIA
     Route: 048
     Dates: start: 20120821
  5. MAGNESIUM SUPPLEMENT [Concomitant]
     Indication: BLOOD MAGNESIUM DECREASED
     Route: 048
     Dates: start: 20120821
  6. CALM VITAMIN SUPPLEMENT [Concomitant]
     Indication: BLOOD MAGNESIUM DECREASED
     Dosage: PRN
     Route: 048
     Dates: start: 20120821
  7. ACIPHEX [Concomitant]
     Indication: GASTROOESOPHAGEAL REFLUX DISEASE
  8. DEXILANT [Concomitant]

REACTIONS (4)
  - Palpitations [Unknown]
  - Tachycardia [Unknown]
  - Flatulence [Recovered/Resolved]
  - Blood magnesium decreased [Unknown]
